FAERS Safety Report 8934377 (Version 1)
Quarter: 2012Q4

REPORT INFORMATION
  Report Type: 
  Country: US (occurrence: US)
  Receive Date: 20121129
  Receipt Date: 20121129
  Transmission Date: 20130627
  Serious: Yes (Other)
  Sender: FDA-Public Use
  Company Number: US-ROCHE-1149848

PATIENT
  Age: 44 Year
  Sex: Female
  Weight: 83.99 kg

DRUGS (6)
  1. XOLAIR [Suspect]
     Indication: ASTHMA
     Route: 058
     Dates: start: 20121016, end: 20121127
  2. PREDNISONE [Suspect]
     Indication: PRODUCT USED FOR UNKNOWN INDICATION
     Route: 065
  3. SYMBICORT [Concomitant]
     Indication: ASTHMA
     Route: 055
  4. MONTELUKAST [Concomitant]
     Route: 048
  5. QVAR [Concomitant]
     Route: 055
  6. CEFUROXIME [Concomitant]
     Indication: SINUSITIS

REACTIONS (1)
  - Headache [Recovered/Resolved]
